FAERS Safety Report 8287780-2 (Version None)
Quarter: 2012Q2

REPORT INFORMATION
  Report Type: 
  Country: None (occurrence: None)
  Receive Date: 20120416
  Receipt Date: 20120412
  Transmission Date: 20120825
  Serious: Yes (Hospitalization, Other)
  Sender: FDA-Public Use
  Company Number: US-MERCK-1112USA02416

PATIENT
  Age: 75 Year
  Sex: Female

DRUGS (1)
  1. FOSAMAX [Suspect]
     Indication: OSTEOPOROSIS
     Route: 048
     Dates: start: 20080805

REACTIONS (27)
  - ANAEMIA [None]
  - FALL [None]
  - DIZZINESS [None]
  - PYREXIA [None]
  - ARTHROPATHY [None]
  - NEURITIS [None]
  - BACK INJURY [None]
  - TENDON RUPTURE [None]
  - HYPOXIA [None]
  - BALANCE DISORDER [None]
  - FEMUR FRACTURE [None]
  - PAIN IN EXTREMITY [None]
  - OSTEOARTHRITIS [None]
  - ACTINIC KERATOSIS [None]
  - GASTROOESOPHAGEAL REFLUX DISEASE [None]
  - DIARRHOEA [None]
  - FRACTURE [None]
  - HIATUS HERNIA [None]
  - MEDICAL DEVICE REMOVAL [None]
  - TREATMENT FAILURE [None]
  - TRANSIENT ISCHAEMIC ATTACK [None]
  - IRON DEFICIENCY ANAEMIA [None]
  - PNEUMONIA [None]
  - PELVIC FRACTURE [None]
  - NEUROPATHY PERIPHERAL [None]
  - BACK PAIN [None]
  - CONJUNCTIVITIS [None]
